FAERS Safety Report 20110567 (Version 1)
Quarter: 2021Q4

REPORT INFORMATION
  Report Type: Spontaneous
  Country: US (occurrence: US)
  Receive Date: 20211124
  Receipt Date: 20211124
  Transmission Date: 20220303
  Serious: No
  Sender: FDA-Public Use
  Company Number: US-NOVOPROD-833361

PATIENT
  Sex: Female

DRUGS (1)
  1. NOVOLOG [Suspect]
     Active Substance: INSULIN ASPART
     Indication: Type 1 diabetes mellitus
     Dosage: 6 IU, TID
     Route: 058
     Dates: start: 2019

REACTIONS (3)
  - Skin laceration [Unknown]
  - Device malfunction [Recovered/Resolved]
  - Blood glucose increased [Unknown]
